FAERS Safety Report 5644864-2 (Version None)
Quarter: 2008Q1

REPORT INFORMATION
  Report Type: 
  Country: None (occurrence: None)
  Receive Date: 20080229
  Receipt Date: 20070924
  Transmission Date: 20080703
  Serious: No
  Sender: FDA-Public Use
  Company Number: A0683821A

PATIENT
  Sex: Male

DRUGS (4)
  1. VALTREX [Suspect]
     Route: 048
     Dates: start: 20070801
  2. NITROGLYCERIN [Concomitant]
     Route: 062
  3. BLOOD PRESSURE MEDICATION [Concomitant]
  4. NITROGLYCERIN [Concomitant]
     Route: 048

REACTIONS (1)
  - THERAPEUTIC RESPONSE UNEXPECTED [None]
